FAERS Safety Report 17946168 (Version 5)
Quarter: 2020Q3

REPORT INFORMATION
  Report Type: Spontaneous
  Country: ES (occurrence: ES)
  Receive Date: 20200625
  Receipt Date: 20200923
  Transmission Date: 20201103
  Serious: No
  Sender: FDA-Public Use
  Company Number: ES-JNJFOC-20200629620

PATIENT
  Age: 39 Year
  Sex: Female

DRUGS (3)
  1. DUROGESIC MATRIX [Suspect]
     Active Substance: FENTANYL
  2. DUROGESIC MATRIX [Suspect]
     Active Substance: FENTANYL
     Indication: NEURALGIA
     Dosage: STRENGTH: 25.00 MCG/HR
     Route: 062
     Dates: start: 201906, end: 202006
  3. DUROGESIC MATRIX [Suspect]
     Active Substance: FENTANYL

REACTIONS (5)
  - Drug ineffective [Not Recovered/Not Resolved]
  - Discomfort [Not Recovered/Not Resolved]
  - Wrong technique in product usage process [Unknown]
  - Product dose omission issue [Unknown]
  - Product adhesion issue [Unknown]
